FAERS Safety Report 4592629-5 (Version None)
Quarter: 2005Q1

REPORT INFORMATION
  Report Type: 
  Country: None (occurrence: None)
  Receive Date: 20050222
  Receipt Date: 20050214
  Transmission Date: 20050727
  Serious: Yes (Hospitalization)
  Sender: FDA-Public Use
  Company Number: 2005029809

PATIENT
  Age: 68 Year
  Sex: Male

DRUGS (7)
  1. ALDACTONE [Suspect]
     Indication: ESSENTIAL HYPERTENSION
     Dosage: 12 MG (12 MG, 1 IN 1 D), ORAL
     Route: 048
     Dates: start: 20020101, end: 20041213
  2. NITROGLYCERIN [Suspect]
     Indication: ILL-DEFINED DISORDER
     Dosage: 10 MG (10 MG, 1 IN 24 HR), TOPICAL
     Route: 061
     Dates: start: 20020101, end: 20041213
  3. BISOPROLOL FUMARATE [Suspect]
     Indication: ESSENTIAL HYPERTENSION
     Dosage: 10 MG (10 MG, 1 IN 1 D), ORAL
     Route: 048
  4. PAROXETINE HCL [Suspect]
     Indication: DYSTHYMIC DISORDER
     Dosage: 20 MG (20 MG, 1 IN 1 D), ORAL
     Route: 048
  5. GLIMEPIRIDE [Suspect]
     Indication: DIABETES MELLITUS
     Dosage: 2 DF ORAL
     Route: 048
     Dates: end: 20041212
  6. RAMIPRIL [Suspect]
     Indication: ESSENTIAL HYPERTENSION
     Dosage: 5 MG (2.5 MG, 2 IN 1 D), ORAL
     Route: 048
  7. SIMVASTATIN [Concomitant]

REACTIONS (5)
  - AUTONOMIC NERVOUS SYSTEM IMBALANCE [None]
  - CAROTID ARTERY STENOSIS [None]
  - FALL [None]
  - HOT FLUSH [None]
  - MALAISE [None]
